FAERS Safety Report 7133694-0 (Version None)
Quarter: 2010Q4

REPORT INFORMATION
  Report Type: 
  Country: None (occurrence: None)
  Receive Date: 20101202
  Receipt Date: 20101119
  Transmission Date: 20110411
  Serious: Yes (Death, Hospitalization)
  Sender: FDA-Public Use
  Company Number: US-MYLANLABS-2010S1021567

PATIENT
  Age: 45 Year
  Sex: Male

DRUGS (6)
  1. VALPROIC ACID [Suspect]
     Indication: CONVULSION
     Route: 065
  2. TACROLIMUS [Concomitant]
     Indication: IMMUNOSUPPRESSION
     Route: 065
  3. PREDNISONE [Concomitant]
     Indication: IMMUNOSUPPRESSION
     Route: 065
  4. MYCOPHENOLATE MOFETIL [Concomitant]
     Indication: IMMUNOSUPPRESSION
     Route: 065
  5. SIROLIMUS [Concomitant]
     Indication: IMMUNOSUPPRESSION
     Route: 065
  6. FOSPHENYTOIN [Concomitant]
     Indication: CONVULSION
     Route: 065

REACTIONS (2)
  - HYPERAMMONAEMIC ENCEPHALOPATHY [None]
  - INBORN ERROR OF METABOLISM [None]
